FAERS Safety Report 12963088 (Version 1)
Quarter: 2016Q4

REPORT INFORMATION
  Report Type: Spontaneous
  Country: CA (occurrence: CA)
  Receive Date: 20161122
  Receipt Date: 20161122
  Transmission Date: 20170207
  Serious: Yes (Life-Threatening)
  Sender: FDA-Public Use
  Company Number: CA-ASTRAZENECA-2016SE89632

PATIENT
  Age: 37 Year
  Sex: Female

DRUGS (3)
  1. SYMBICORT [Suspect]
     Active Substance: BUDESONIDE\FORMOTEROL FUMARATE DIHYDRATE
     Dosage: 160/4.5 UG TWO INHALATIONS TWO TIMES A DAY
     Route: 055
     Dates: start: 20160802
  2. SYMBICORT [Suspect]
     Active Substance: BUDESONIDE\FORMOTEROL FUMARATE DIHYDRATE
     Dosage: 160/4.5 UG TWO INHALATIONS TWO TIMES A DAY
     Route: 055
     Dates: start: 2007
  3. SYMBICORT [Suspect]
     Active Substance: BUDESONIDE\FORMOTEROL FUMARATE DIHYDRATE
     Dosage: 160/4.5 UG TWO INHALATIONS TWO TIMES A DAY
     Route: 055
     Dates: start: 20160815

REACTIONS (2)
  - Asthma [Unknown]
  - Device malfunction [Unknown]

NARRATIVE: CASE EVENT DATE: 201608
